FAERS Safety Report 13300628 (Version 1)
Quarter: 2017Q1

REPORT INFORMATION
  Report Type: Report from Study
  Country: US (occurrence: US)
  Receive Date: 20170307
  Receipt Date: 20170307
  Transmission Date: 20170428
  Serious: Yes (Other)
  Sender: FDA-Public Use
  Company Number: US-AUROBINDO-AUR-APL-2017-30463

PATIENT

DRUGS (2)
  1. LOPERAMIDE [Suspect]
     Active Substance: LOPERAMIDE
     Indication: EUPHORIC MOOD
     Dosage: 100?250MG
     Route: 065
  2. CIMETIDINE [Suspect]
     Active Substance: CIMETIDINE
     Indication: EUPHORIC MOOD
     Dosage: 400 MG, DAILY
     Route: 065

REACTIONS (2)
  - Drug abuse [Unknown]
  - Torsade de pointes [Unknown]
